FAERS Safety Report 5211912-3 (Version None)
Quarter: 2006Q4

REPORT INFORMATION
  Report Type: 
  Country: None (occurrence: None)
  Receive Date: 20061107
  Receipt Date: 20060731
  Transmission Date: 20070319
  Serious: No
  Sender: FDA-Public Use
  Company Number: 200614899BWH

PATIENT
  Age: 48 Year
  Sex: Male

DRUGS (2)
  1. LEVITRA [Suspect]
     Indication: ERECTILE DYSFUNCTION
     Dosage: 10 MG, TOTAL DAILY, ORAL; SEE IMAGE
     Route: 048
     Dates: start: 20060701
  2. LEVITRA [Suspect]
     Indication: ERECTILE DYSFUNCTION
     Dosage: 10 MG, TOTAL DAILY, ORAL; SEE IMAGE
     Route: 048
     Dates: start: 20060701

REACTIONS (3)
  - ARTHRALGIA [None]
  - ENERGY INCREASED [None]
  - PAIN IN EXTREMITY [None]
